FAERS Safety Report 22644103 (Version 7)
Quarter: 2023Q4

REPORT INFORMATION
  Report Type: Spontaneous
  Country: US (occurrence: US)
  Receive Date: 20230627
  Receipt Date: 20231122
  Transmission Date: 20240109
  Serious: Yes (Hospitalization, Other)
  Sender: FDA-Public Use
  Company Number: US-BRISTOL-MYERS SQUIBB COMPANY-2023-088961

PATIENT
  Age: 75 Year
  Sex: Male
  Weight: 75.84 kg

DRUGS (7)
  1. POMALYST [Suspect]
     Active Substance: POMALIDOMIDE
     Indication: Plasma cell myeloma
     Dosage: TAKE 1 CAPSULE BY MOUTH ONCE DAILY FOR 21 DAYS EVERY 28 DAYS
     Route: 048
     Dates: start: 20210317
  2. POMALYST [Suspect]
     Active Substance: POMALIDOMIDE
     Route: 048
     Dates: end: 202305
  3. POMALYST [Suspect]
     Active Substance: POMALIDOMIDE
     Dosage: TAKE 1 CAPSULE BY MOUTH ONCE DAILY FOR 21 DAYS EVERY 28 DAYS
     Route: 048
     Dates: end: 20231031
  4. POMALYST [Suspect]
     Active Substance: POMALIDOMIDE
     Dosage: TAKE 1 CAPSULE BY MOUTH ONCE DAILY FOR 21 DAYS EVERY 28 DAYS, RESTARTED
     Route: 048
     Dates: start: 20231103
  5. CALCIUM ACETATE [Concomitant]
     Active Substance: CALCIUM ACETATE
     Indication: Product used for unknown indication
     Route: 048
  6. METOPROLOL TARTRATE [Concomitant]
     Active Substance: METOPROLOL TARTRATE
     Indication: Product used for unknown indication
     Route: 048
  7. ELIQUIS [Concomitant]
     Active Substance: APIXABAN
     Indication: Product used for unknown indication

REACTIONS (21)
  - Chest pain [Unknown]
  - Asthenia [Unknown]
  - Somnolence [Unknown]
  - Dyspnoea [Unknown]
  - Depression [Unknown]
  - Neuropathy peripheral [Recovering/Resolving]
  - Insomnia [Unknown]
  - Renal impairment [Unknown]
  - Pleural effusion [Unknown]
  - Hypervolaemia [Unknown]
  - Chronic kidney disease [Unknown]
  - Pancytopenia [Unknown]
  - Ecchymosis [Unknown]
  - Chronic left ventricular failure [Unknown]
  - Atrial fibrillation [Unknown]
  - Ventricular extrasystoles [Unknown]
  - Acute respiratory failure [Unknown]
  - Oedema peripheral [Unknown]
  - Product dose omission issue [Unknown]
  - Weight decreased [Recovering/Resolving]
  - Tachycardia [Recovered/Resolved]

NARRATIVE: CASE EVENT DATE: 20230101
